FAERS Safety Report 25093218 (Version 1)
Quarter: 2025Q1

REPORT INFORMATION
  Report Type: Spontaneous
  Country: ET (occurrence: ET)
  Receive Date: 20250319
  Receipt Date: 20250319
  Transmission Date: 20250409
  Serious: Yes (Other)
  Sender: Unknown Manufacturer
  Company Number: ET-LEGACY PHARMA INC. SEZC-LGP202503-000021

PATIENT
  Age: 43 Year
  Sex: Male

DRUGS (1)
  1. ATROPINE SULFATE\DIFENOXIN HYDROCHLORIDE [Suspect]
     Active Substance: ATROPINE SULFATE\DIFENOXIN HYDROCHLORIDE
     Indication: Bradycardia
     Route: 065

REACTIONS (2)
  - Hypertensive urgency [Recovered/Resolved]
  - Headache [Recovered/Resolved]
